FAERS Safety Report 11744406 (Version 1)
Quarter: 2015Q4

REPORT INFORMATION
  Report Type: Spontaneous
  Country: US (occurrence: US)
  Receive Date: 20151116
  Receipt Date: 20151116
  Transmission Date: 20160304
  Serious: No
  Sender: FDA-Public Use
  Company Number: US-EPIC PHARMA LLC-2015EPC00006

PATIENT
  Age: 76 Year
  Sex: Female
  Weight: 52.15 kg

DRUGS (1)
  1. BETAXOLOL. [Suspect]
     Active Substance: BETAXOLOL
     Indication: HYPERTENSION
     Dosage: 10 MG, 1X/DAY
     Route: 048
     Dates: start: 2009

REACTIONS (4)
  - Ear pain [Not Recovered/Not Resolved]
  - Headache [Recovered/Resolved]
  - Ear infection [Not Recovered/Not Resolved]
  - Eye pain [Recovered/Resolved]

NARRATIVE: CASE EVENT DATE: 20150607
